FAERS Safety Report 7001272-X (Version None)
Quarter: 2010Q3

REPORT INFORMATION
  Report Type: 
  Country: None (occurrence: None)
  Receive Date: 20100920
  Receipt Date: 20100914
  Transmission Date: 20110219
  Serious: Yes (Death, Hospitalization)
  Sender: FDA-Public Use
  Company Number: SE-ROCHE-722577

PATIENT
  Age: 60 Year
  Sex: Female

DRUGS (3)
  1. ROACTEMRA [Suspect]
     Indication: RHEUMATOID ARTHRITIS
     Dosage: DRUG NAME REPORTED AS: ROACTEMRA CONC FOR SOL FOR INF 20 MG/ML.
     Route: 042
     Dates: start: 20100118, end: 20100713
  2. METHOTREXATE [Concomitant]
     Dosage: REPORTED AS: METHOTREXATE ORION TABLET 2.5 MG
  3. PREDNISOLON [Concomitant]
     Dosage: REPORTED AS: PREDNISOLON COMP EYE DROPS, FORM: EYE DROPS
     Route: 047

REACTIONS (4)
  - CIRCULATORY COLLAPSE [None]
  - LEUKOPENIA [None]
  - SEPSIS [None]
  - THROMBOCYTOPENIA [None]
